FAERS Safety Report 23217062 (Version 2)
Quarter: 2024Q1

REPORT INFORMATION
  Report Type: Report from Study
  Country: US (occurrence: US)
  Receive Date: 20231122
  Receipt Date: 20240104
  Transmission Date: 20240410
  Serious: Yes (Hospitalization)
  Sender: FDA-Public Use
  Company Number: US-ABBVIE-5499415

PATIENT
  Age: 76 Year
  Sex: Female

DRUGS (2)
  1. DUOPA [Suspect]
     Active Substance: CARBIDOPA\LEVODOPA
     Indication: Parkinson^s disease
     Route: 050
     Dates: start: 20210507
  2. DUOPA [Suspect]
     Active Substance: CARBIDOPA\LEVODOPA
     Route: 050

REACTIONS (5)
  - Hip fracture [Unknown]
  - Fall [Recovered/Resolved]
  - Limb injury [Recovering/Resolving]
  - Wound infection [Unknown]
  - Rash [Unknown]

NARRATIVE: CASE EVENT DATE: 20230630
